FAERS Safety Report 4928044-1 (Version None)
Quarter: 2006Q1

REPORT INFORMATION
  Report Type: 
  Country: None (occurrence: None)
  Receive Date: 20060228
  Receipt Date: 20051125
  Transmission Date: 20060701
  Serious: Yes (Hospitalization)
  Sender: FDA-Public Use
  Company Number: JP-BOEHRINGER INGELHEIM PHARMACEUTICALS, INC.-2005-BP-20668NB

PATIENT
  Sex: Female
  Weight: 56 kg

DRUGS (6)
  1. MICARDIS [Suspect]
     Indication: HYPERTENSION
     Route: 048
     Dates: start: 20040929, end: 20051123
  2. LOXONIN [Suspect]
     Indication: PAIN IN EXTREMITY
     Route: 048
     Dates: start: 20020101
  3. OMEPRAL [Suspect]
     Indication: ABDOMINAL PAIN UPPER
     Route: 048
     Dates: start: 20050914, end: 20051019
  4. FERO-GRADUMET [Concomitant]
     Indication: ANAEMIA
     Route: 048
     Dates: start: 20051101, end: 20051107
  5. CRAVIT [Concomitant]
     Indication: BRONCHITIS
     Route: 048
     Dates: start: 20051006, end: 20051019
  6. ALLELOCK [Concomitant]
     Indication: RHINITIS ALLERGIC
     Route: 048
     Dates: start: 20050922, end: 20051005

REACTIONS (3)
  - HAEMODIALYSIS [None]
  - RENAL FAILURE ACUTE [None]
  - RENAL IMPAIRMENT [None]
